FAERS Safety Report 8266656-0 (Version None)
Quarter: 2012Q2

REPORT INFORMATION
  Report Type: 
  Country: None (occurrence: None)
  Receive Date: 20120407
  Receipt Date: 20120327
  Transmission Date: 20120825
  Serious: Yes (Other)
  Sender: FDA-Public Use
  Company Number: US-ASTRAZENECA-2011SE49223

PATIENT
  Age: 64 Year
  Sex: Male

DRUGS (5)
  1. CRESTOR [Suspect]
     Route: 048
  2. FISH OIL [Concomitant]
  3. PLAVIX [Concomitant]
  4. FENOFIBRATE [Concomitant]
  5. COQ10 [Concomitant]

REACTIONS (16)
  - NASAL POLYPS [None]
  - HAEMORRHAGE [None]
  - PROSTATE CANCER [None]
  - CATARACT [None]
  - INTESTINAL POLYP [None]
  - DRUG DOSE OMISSION [None]
  - EYE HAEMORRHAGE [None]
  - PRURITUS [None]
  - HAEMORRHOIDAL HAEMORRHAGE [None]
  - BACK DISORDER [None]
  - SKIN HAEMORRHAGE [None]
  - INFLAMMATION [None]
  - HIGH DENSITY LIPOPROTEIN DECREASED [None]
  - VISUAL ACUITY REDUCED [None]
  - SINUS POLYP [None]
  - RASH [None]
